FAERS Safety Report 12188537 (Version 4)
Quarter: 2017Q2

REPORT INFORMATION
  Report Type: Spontaneous
  Country: RS (occurrence: RS)
  Receive Date: 20160317
  Receipt Date: 20170519
  Transmission Date: 20170830
  Serious: Yes (Death, Hospitalization)
  Sender: FDA-Public Use
  Company Number: RS-JNJFOC-20160313926

PATIENT
  Sex: Male

DRUGS (8)
  1. NEBILET [Concomitant]
     Active Substance: NEBIVOLOL
     Route: 065
  2. CARDIOPIRIN [Concomitant]
     Active Substance: ASPIRIN
     Route: 065
  3. MONOPRIL [Concomitant]
     Active Substance: FOSINOPRIL SODIUM
     Route: 065
  4. STELARA [Suspect]
     Active Substance: USTEKINUMAB
     Indication: PSORIATIC ARTHROPATHY
     Route: 058
     Dates: start: 20151112, end: 20160304
  5. AFLAMIL [Concomitant]
     Route: 065
  6. LERCANIL [Concomitant]
     Route: 065
  7. LASIX [Concomitant]
     Active Substance: FUROSEMIDE
     Route: 065
  8. ARAVA [Concomitant]
     Active Substance: LEFLUNOMIDE
     Route: 065
     Dates: start: 201504

REACTIONS (3)
  - Cardiac failure [Unknown]
  - Cerebral infarction [Fatal]
  - Staphylococcal sepsis [Fatal]
